FAERS Safety Report 8175094-0 (Version None)
Quarter: 2012Q1

REPORT INFORMATION
  Report Type: 
  Country: None (occurrence: None)
  Receive Date: 20120229
  Receipt Date: 20120222
  Transmission Date: 20120608
  Serious: Yes (Death, Hospitalization, Other)
  Sender: FDA-Public Use
  Company Number: PHHY2012DE014806

PATIENT
  Sex: Female
  Weight: 90 kg

DRUGS (23)
  1. DIURETICS [Concomitant]
  2. NITRATES [Concomitant]
  3. DIOVAN [Suspect]
     Indication: HYPERTENSION
     Dosage: 80 MG, PER DAY
     Route: 048
     Dates: start: 20100429, end: 20110703
  4. CARVEDILOL [Suspect]
     Indication: HYPERTENSION
     Dosage: 1 DF, BID
     Route: 048
     Dates: start: 20110515
  5. BETA BLOCKING AGENTS [Concomitant]
  6. LYRICA [Suspect]
     Indication: PAIN
     Dosage: 1 DF, QD
     Route: 048
     Dates: start: 20100215
  7. DIOVAN [Suspect]
     Dosage: 160 MG, 1 DF QD
     Route: 048
     Dates: start: 20110704
  8. INSULIN [Suspect]
     Indication: DIABETES MELLITUS
     Dosage: 10 IU, QD
     Route: 058
     Dates: start: 20100114
  9. VALORON N [Suspect]
     Indication: PAIN
     Dosage: 1 DF, TID
     Route: 048
     Dates: start: 20100824
  10. ACTRAPID HUMAN [Suspect]
     Indication: DIABETES MELLITUS
     Dosage: 8+12+8 IU
     Route: 058
  11. FALITHROM [Suspect]
     Indication: MESENTERIC VEIN THROMBOSIS
     Route: 048
     Dates: start: 20110515
  12. HMG COA REDUCTASE INHIBITORS (STATINS) [Concomitant]
  13. AMLODIPINE [Concomitant]
     Dates: start: 20100429
  14. ASPIRIN [Suspect]
     Indication: CARDIAC FAILURE
     Dosage: 1 DF, QD
     Route: 048
     Dates: start: 20011024, end: 20110514
  15. MOTILIUM [Suspect]
     Indication: PAIN
     Dosage: 1 DF, TID
     Route: 048
     Dates: start: 20110515
  16. ANGIOTENSIN II ANTAGONISTS [Concomitant]
     Dates: start: 20081217, end: 20090311
  17. ANTICOAGULANTS [Concomitant]
  18. INSULIN [Concomitant]
     Indication: DIABETES MELLITUS
  19. THIENOPYRIDINES [Concomitant]
  20. ANTIDEPRESSANTS [Concomitant]
  21. EXFORGE [Suspect]
     Indication: HYPERTENSION
     Dosage: 1 DF, QD
     Route: 048
     Dates: start: 20080312
  22. FUROSEMIDE [Suspect]
     Indication: PULMONARY OEDEMA
     Dosage: 1 DF, BID
     Route: 048
     Dates: start: 20110616
  23. ACE INHIBITORS [Concomitant]
     Dates: start: 20090311, end: 20100429

REACTIONS (11)
  - PNEUMONIA [None]
  - PAIN [None]
  - DEMENTIA [None]
  - OSTEOARTHRITIS [None]
  - PULMONARY OEDEMA [None]
  - LYMPHOEDEMA [None]
  - BLOOD GLUCOSE INCREASED [None]
  - DEATH [None]
  - HYPERTENSION [None]
  - DEEP VEIN THROMBOSIS [None]
  - DELIRIUM [None]
